FAERS Safety Report 4379537-X (Version None)
Quarter: 2004Q2

REPORT INFORMATION
  Report Type: 
  Country: None (occurrence: None)
  Receive Date: 20040601
  Receipt Date: 20040413
  Transmission Date: 20050107
  Serious: No
  Sender: FDA-Public Use
  Company Number: WAES 0404USA01303

PATIENT
  Age: 33 Year
  Sex: Female
  Weight: 98.8842 kg

DRUGS (2)
  1. ZETIA [Suspect]
     Indication: HYPERCHOLESTEROLAEMIA
     Dosage: 10 MG/DAILY/PO
     Route: 048
     Dates: start: 20031114, end: 20040321
  2. GLUCOPHAGE [Concomitant]

REACTIONS (2)
  - DIZZINESS [None]
  - HEPATITIS [None]
